FAERS Safety Report 20191884 (Version 1)
Quarter: 2021Q4

REPORT INFORMATION
  Report Type: Spontaneous
  Country: US (occurrence: US)
  Receive Date: 20211216
  Receipt Date: 20211216
  Transmission Date: 20220304
  Serious: No
  Sender: FDA-Public Use
  Company Number: US-ENDO PHARMACEUTICALS INC-2020-004146

PATIENT
  Sex: Male

DRUGS (5)
  1. XIAFLEX [Suspect]
     Active Substance: COLLAGENASE CLOSTRIDIUM HISTOLYTICUM
     Indication: Peyronie^s disease
     Dosage: 0.58MG UNKNOWN (CYCLE 3, INJECTION 1)
     Dates: start: 20210128
  2. XIAFLEX [Suspect]
     Active Substance: COLLAGENASE CLOSTRIDIUM HISTOLYTICUM
     Dosage: 0.58MG UNKNOWN   (CYCLE 2, INJECTION 2)
  3. XIAFLEX [Suspect]
     Active Substance: COLLAGENASE CLOSTRIDIUM HISTOLYTICUM
     Dosage: 0.58MG UNKNOWN (CYCLE 2, INJECTION 1)
     Route: 065
     Dates: start: 20200710
  4. XIAFLEX [Suspect]
     Active Substance: COLLAGENASE CLOSTRIDIUM HISTOLYTICUM
     Dosage: 0.58MG UNKNOWN (CYCLE 1, INJECTION 2)
     Route: 065
  5. XIAFLEX [Suspect]
     Active Substance: COLLAGENASE CLOSTRIDIUM HISTOLYTICUM
     Dosage: 0.58MG UNKNOWN (CYCLE 1, INJECTION 1)
     Route: 065
     Dates: start: 20200218

REACTIONS (6)
  - Penile contusion [Unknown]
  - Penile pain [Unknown]
  - Blister [Unknown]
  - Mass [Not Recovered/Not Resolved]
  - Swelling [Unknown]
  - Drug ineffective [Unknown]

NARRATIVE: CASE EVENT DATE: 20200101
